FAERS Safety Report 16798862 (Version 1)
Quarter: 2019Q4

REPORT INFORMATION
  Report Type: Spontaneous
  Country: US (occurrence: US)
  Receive Date: 20190911
  Receipt Date: 20190911
  Transmission Date: 20200122
  Serious: Yes (Life-Threatening, Hospitalization)
  Sender: FDA-Public Use
  Company Number: None

PATIENT
  Age: 19 Year
  Sex: Female
  Weight: 92.25 kg

DRUGS (8)
  1. TRAZODONE [Concomitant]
     Active Substance: TRAZODONE HYDROCHLORIDE
  2. SERTRALINE [Concomitant]
     Active Substance: SERTRALINE HYDROCHLORIDE
  3. FISH OIL [Concomitant]
     Active Substance: FISH OIL
  4. DIVALPROEX [Concomitant]
     Active Substance: DIVALPROEX SODIUM
  5. SUMATRIPTAN. [Concomitant]
     Active Substance: SUMATRIPTAN
  6. MELATONIN [Concomitant]
     Active Substance: MELATONIN
  7. PRAZOIN [Concomitant]
  8. AMBIEN [Suspect]
     Active Substance: ZOLPIDEM TARTRATE
     Indication: INSOMNIA
     Dosage: ?          QUANTITY:1 TABLET(S);?
     Route: 048

REACTIONS (8)
  - Abnormal sleep-related event [None]
  - Dizziness [None]
  - Malaise [None]
  - Fear [None]
  - Amnesia [None]
  - Unresponsive to stimuli [None]
  - Economic problem [None]
  - Accidental overdose [None]

NARRATIVE: CASE EVENT DATE: 20181120
